FAERS Safety Report 4604083-5 (Version None)
Quarter: 2005Q1

REPORT INFORMATION
  Report Type: 
  Country: None (occurrence: None)
  Receive Date: 20050309
  Receipt Date: 20050309
  Transmission Date: 20050727
  Serious: Yes (Hospitalization)
  Sender: FDA-Public Use
  Company Number: None

PATIENT
  Sex: Male
  Weight: 83.0083 kg

DRUGS (1)
  1. CISPLATIN [Suspect]
     Indication: SQUAMOUS CELL CARCINOMA
     Dosage: 235 MG DAY 1 INTRAVENOUS
     Route: 042
     Dates: start: 20040923, end: 20040923

REACTIONS (4)
  - DYSPHAGIA [None]
  - LOCALISED OEDEMA [None]
  - OROPHARYNGEAL SWELLING [None]
  - POST PROCEDURAL OEDEMA [None]
